FAERS Safety Report 23995142 (Version 8)
Quarter: 2025Q1

REPORT INFORMATION
  Report Type: Spontaneous
  Country: US (occurrence: US)
  Receive Date: 20240620
  Receipt Date: 20250207
  Transmission Date: 20250408
  Serious: Yes (Other)
  Sender: VERTEX
  Company Number: US-VERTEX PHARMACEUTICALS-2024-009992

PATIENT

DRUGS (2)
  1. TRIKAFTA [Suspect]
     Active Substance: ELEXACAFTOR\IVACAFTOR\TEZACAFTOR
     Indication: Cystic fibrosis
     Route: 048
  2. SIROLIMUS [Concomitant]
     Active Substance: SIROLIMUS

REACTIONS (7)
  - Gastrointestinal surgery [Unknown]
  - Malabsorption [Unknown]
  - Steatorrhoea [Unknown]
  - Cystic fibrosis related diabetes [Not Recovered/Not Resolved]
  - Acne cystic [Not Recovered/Not Resolved]
  - Flatulence [Unknown]
  - Abdominal pain [Unknown]
